FAERS Safety Report 8711496 (Version 1)
Quarter: 2012Q4

REPORT INFORMATION
  Report Type: 
  Country: US (occurrence: US)
  Receive Date: 20120829
  Receipt Date: 20120829
  Transmission Date: 20130627
  Serious: Yes (Other)
  Sender: FDA-Public Use
  Company Number: US-ROCHE-1096772

PATIENT
  Sex: Female

DRUGS (4)
  1. XOLAIR [Suspect]
     Indication: ASTHMA
     Route: 065
     Dates: end: 20071201
  2. SINGULAIR [Concomitant]
     Route: 065
  3. ALLEGRA [Concomitant]
     Route: 065
  4. FORADIL [Concomitant]
     Route: 065

REACTIONS (9)
  - Food allergy [Unknown]
  - Sinusitis [Unknown]
  - Asthma [Unknown]
  - Cough [Unknown]
  - Dyspnoea [Unknown]
  - Wheezing [Unknown]
  - Eye swelling [Unknown]
  - Headache [Unknown]
  - Rash [Unknown]
